FAERS Safety Report 4999370-5 (Version None)
Quarter: 2006Q2

REPORT INFORMATION
  Report Type: 
  Country: None (occurrence: None)
  Receive Date: 20060510
  Receipt Date: 20060510
  Transmission Date: 20061013
  Serious: Yes (Other)
  Sender: FDA-Public Use
  Company Number: None

PATIENT
  Age: 55 Year
  Sex: Female
  Weight: 70.3075 kg

DRUGS (2)
  1. READI-CAT2 BARIUM 2.1% W/V, 2.0 % E-Z EM CANADA, INC. SULFATE SUSPENSI [Suspect]
     Indication: LYMPHOMA
     Dosage: TWO CONTAINERS -450 ML EACH ONE EACH HOUR PO
     Route: 048
     Dates: start: 20060508, end: 20060508
  2. IV DYE INJECTION [Concomitant]

REACTIONS (1)
  - DIARRHOEA [None]
